FAERS Safety Report 14683720 (Version 1)
Quarter: 2018Q1

REPORT INFORMATION
  Report Type: Spontaneous
  Country: SI (occurrence: SI)
  Receive Date: 20180327
  Receipt Date: 20180327
  Transmission Date: 20180509
  Serious: Yes (Hospitalization, Other)
  Sender: FDA-Public Use
  Company Number: SI-BAXTER-2018BAX009274

PATIENT
  Age: 64 Year
  Sex: Female

DRUGS (6)
  1. ENDOXAN 1G PRASEK ZA RAZTOPINO ZA INFUNDIRANJE [Suspect]
     Active Substance: CYCLOPHOSPHAMIDE
     Dosage: DOSE REDUCED
     Route: 042
  2. DOXORUBICIN TEVA [Suspect]
     Active Substance: DOXORUBICIN
     Indication: BREAST CANCER
     Dosage: 2 MG/ML POWDER FOR SOLUTION FOR INFUSION
     Route: 042
     Dates: start: 20180205, end: 20180207
  3. ENDOXAN 1G PRASEK ZA RAZTOPINO ZA INFUNDIRANJE [Suspect]
     Active Substance: CYCLOPHOSPHAMIDE
     Indication: BREAST CANCER
     Dosage: 1000 MG POWDER FOR SOLUTION FOR INFUSION
     Route: 042
     Dates: start: 20180205, end: 20180207
  4. DOXORUBICIN TEVA [Suspect]
     Active Substance: DOXORUBICIN
     Dosage: DOSE REDUCED
     Route: 042
  5. PLIVIT D3 [Concomitant]
     Active Substance: CHOLECALCIFEROL
     Indication: PRODUCT USED FOR UNKNOWN INDICATION
     Route: 065
  6. FEMARA [Concomitant]
     Active Substance: LETROZOLE
     Indication: PRODUCT USED FOR UNKNOWN INDICATION
     Route: 065

REACTIONS (2)
  - Mouth ulceration [Recovered/Resolved]
  - Injection site extravasation [Recovered/Resolved]

NARRATIVE: CASE EVENT DATE: 20180205
